FAERS Safety Report 8998151 (Version 2)
Quarter: 2013Q1

REPORT INFORMATION
  Report Type: Spontaneous
  Country: BR (occurrence: BR)
  Receive Date: 20130104
  Receipt Date: 20130109
  Transmission Date: 20140127
  Serious: Yes (Hospitalization, Other)
  Sender: FDA-Public Use
  Company Number: BR-ABBOTT-12P-020-1029054-00

PATIENT
  Age: 37 Year
  Sex: Female
  Weight: 51 kg

DRUGS (5)
  1. HUMIRA [Suspect]
     Indication: ANKYLOSING SPONDYLITIS
     Route: 058
     Dates: start: 20121018
  2. PREDNISONE [Concomitant]
     Indication: PRODUCT USED FOR UNKNOWN INDICATION
     Route: 048
     Dates: start: 201206
  3. OMEPRAZOLE [Concomitant]
     Indication: GASTRIC DISORDER
     Route: 048
     Dates: start: 201206
  4. PRED FORT [Concomitant]
     Indication: EYE DISORDER
     Route: 050
  5. LOTAR [Concomitant]
     Indication: HYPERTENSION
     Dosage: 5 MG + 50 MG
     Route: 048

REACTIONS (6)
  - Paraesthesia [Recovering/Resolving]
  - Rash macular [Recovering/Resolving]
  - Pruritus [Recovering/Resolving]
  - Reflexes abnormal [Unknown]
  - Pain [Unknown]
  - Post lumbar puncture syndrome [Unknown]
